FAERS Safety Report 5129964-8 (Version None)
Quarter: 2006Q4

REPORT INFORMATION
  Report Type: 
  Country: None (occurrence: None)
  Receive Date: 20061018
  Receipt Date: 20061010
  Transmission Date: 20070319
  Serious: Yes (Hospitalization)
  Sender: FDA-Public Use
  Company Number: FR-ROXANE LABORATORIES, INC-2006-BP-11800RO

PATIENT
  Age: 62 Day
  Sex: Male

DRUGS (5)
  1. DIGOXIN [Suspect]
     Indication: CARDIAC FAILURE
     Dosage: 5 MCG/KG/DAY
     Route: 048
  2. FUROSEMIDE [Suspect]
     Indication: CARDIAC FAILURE
     Dosage: 2 MG/KG/DAY
     Route: 048
  3. JOSAMYCIN [Suspect]
     Indication: PERTUSSIS
     Dosage: 50 MG/KG/DAY
  4. CAPTOPRIL [Concomitant]
     Indication: CARDIAC FAILURE
  5. CAPTOPRIL [Concomitant]

REACTIONS (11)
  - BLOOD PRESSURE DECREASED [None]
  - BRADYCARDIA [None]
  - COUGH [None]
  - DRUG INTERACTION [None]
  - FLUID OVERLOAD [None]
  - HYPOKALAEMIA [None]
  - RESPIRATORY ACIDOSIS [None]
  - RESPIRATORY DISTRESS [None]
  - SINOATRIAL BLOCK [None]
  - SKIN DISCOLOURATION [None]
  - THERAPEUTIC AGENT TOXICITY [None]
